FAERS Safety Report 14184880 (Version 4)
Quarter: 2018Q3

REPORT INFORMATION
  Report Type: Spontaneous
  Country: US (occurrence: US)
  Receive Date: 20171113
  Receipt Date: 20180702
  Transmission Date: 20181010
  Serious: No
  Sender: FDA-Public Use
  Company Number: US-ACTELION-A-NJ2017-162307

PATIENT
  Age: 35 Year
  Sex: Female
  Weight: 126.98 kg

DRUGS (6)
  1. UPTRAVI [Suspect]
     Active Substance: SELEXIPAG
     Dosage: 400 MCG, BID
     Route: 048
     Dates: start: 20171031
  2. UPTRAVI [Suspect]
     Active Substance: SELEXIPAG
     Indication: PULMONARY ARTERIAL HYPERTENSION
     Dosage: 200 MCG, QD
     Route: 048
     Dates: start: 20180610, end: 20180626
  3. UPTRAVI [Suspect]
     Active Substance: SELEXIPAG
     Dosage: 200 MCG, BID
     Route: 048
     Dates: start: 20180530
  4. LASIX [Concomitant]
     Active Substance: FUROSEMIDE
  5. LETAIRIS [Suspect]
     Active Substance: AMBRISENTAN
     Indication: PRODUCT USED FOR UNKNOWN INDICATION
     Dosage: 10 MG, QD
     Route: 065
     Dates: start: 20171003
  6. OXYGEN. [Concomitant]
     Active Substance: OXYGEN

REACTIONS (14)
  - Joint swelling [Recovering/Resolving]
  - Decreased appetite [Unknown]
  - Dizziness [Unknown]
  - Headache [Recovering/Resolving]
  - Loss of personal independence in daily activities [Unknown]
  - Cough [Unknown]
  - Oedema peripheral [Unknown]
  - Asthenia [Unknown]
  - Chest pain [Unknown]
  - Blood pressure decreased [Unknown]
  - Diarrhoea [Unknown]
  - Dyspnoea [Unknown]
  - Oxygen consumption increased [Unknown]
  - Fatigue [Recovering/Resolving]
